FAERS Safety Report 15953245 (Version 1)
Quarter: 2019Q1

REPORT INFORMATION
  Report Type: Report from Study
  Country: GR (occurrence: GR)
  Receive Date: 20190211
  Receipt Date: 20190211
  Transmission Date: 20190417
  Serious: Yes (Hospitalization, Other)
  Sender: FDA-Public Use
  Company Number: GR-ASPEN-GLO2017GR011491

PATIENT
  Age: 76 Year
  Sex: Male
  Weight: 105 kg

DRUGS (7)
  1. NEBIVOLOL. [Concomitant]
     Active Substance: NEBIVOLOL
     Indication: CARDIOVASCULAR DISORDER
     Dosage: 1/2 PER DAY
     Route: 048
  2. RANOLAZINE. [Concomitant]
     Active Substance: RANOLAZINE
     Indication: CARDIOVASCULAR DISORDER
     Dosage: 1 PER DAY
     Route: 048
  3. AMLODIPINE [Concomitant]
     Active Substance: AMLODIPINE BESYLATE
     Indication: HYPERTENSION
     Dosage: 1 PER DAY
     Route: 048
  4. OBINUTUZUMAB. [Suspect]
     Active Substance: OBINUTUZUMAB
     Indication: CHRONIC LYMPHOCYTIC LEUKAEMIA
     Dosage: 1000 MG, 1 DOSE MONTHLY
     Route: 042
     Dates: start: 20170328, end: 20170817
  5. CHLORAMBUCIL [Suspect]
     Active Substance: CHLORAMBUCIL
     Indication: CHRONIC LYMPHOCYTIC LEUKAEMIA
     Dosage: 70 MG, 1 DOSE MONTHLY
     Route: 048
     Dates: start: 20170329, end: 20170402
  6. FUROSEMIDE. [Concomitant]
     Active Substance: FUROSEMIDE
     Indication: CARDIOVASCULAR DISORDER
     Dosage: 2 PER DAY
     Route: 048
  7. ISOSORBIDE MONONITRATE. [Concomitant]
     Active Substance: ISOSORBIDE MONONITRATE
     Indication: CARDIOVASCULAR DISORDER
     Dosage: 1 PER DAY
     Route: 048

REACTIONS (4)
  - Thrombocytopenia [Recovered/Resolved]
  - Tumour lysis syndrome [Recovered/Resolved]
  - Sinusitis [Recovered/Resolved]
  - Malaise [Recovered/Resolved]

NARRATIVE: CASE EVENT DATE: 20170328
